FAERS Safety Report 10189095 (Version 2)
Quarter: 2014Q4

REPORT INFORMATION
  Report Type: Spontaneous
  Country: US (occurrence: US)
  Receive Date: 20140522
  Receipt Date: 20141117
  Transmission Date: 20150528
  Serious: Yes (Death)
  Sender: FDA-Public Use
  Company Number: US-BAYER-2014-075314

PATIENT

DRUGS (1)
  1. MIRENA [Suspect]
     Active Substance: LEVONORGESTREL
     Route: 064

REACTIONS (2)
  - Premature baby [Fatal]
  - Foetal exposure during pregnancy [None]

NARRATIVE: CASE EVENT DATE: 20111022
